FAERS Safety Report 4753569-1 (Version None)
Quarter: 2005Q3

REPORT INFORMATION
  Report Type: 
  Country: None (occurrence: None)
  Receive Date: 20050824
  Receipt Date: 20050815
  Transmission Date: 20060218
  Serious: Yes (Life-Threatening, Hospitalization, Disabling, Other)
  Sender: FDA-Public Use
  Company Number: 2005075302

PATIENT
  Age: 67 Year
  Sex: Female
  Weight: 55 kg

DRUGS (8)
  1. CABERGOLINE [Suspect]
     Indication: PARKINSON'S DISEASE
     Dosage: SEE IMAGE
     Route: 048
     Dates: start: 20020101, end: 20050101
  2. CABERGOLINE [Suspect]
     Indication: PARKINSON'S DISEASE
     Dosage: SEE IMAGE
     Route: 048
     Dates: start: 20010101
  3. MADOPAR (BENSERAZIDE HYDROCHLORIDE, LEVODIPA) [Concomitant]
  4. MADOPAR 62.5 (BENSERAZIDE HYDROCHLORIDE, LEVODOPA) [Concomitant]
  5. COMTESS (ENTACAPONE) [Concomitant]
  6. AMANTADINE HCL [Concomitant]
  7. NACOM ^MSD^ (CARBIDOPA, LEVODOPA) [Concomitant]
  8. EDRONAX [Concomitant]

REACTIONS (11)
  - ANAEMIA [None]
  - AORTIC VALVE INCOMPETENCE [None]
  - ATRIAL FLUTTER [None]
  - DYSPNOEA [None]
  - DYSPNOEA AT REST [None]
  - DYSPNOEA EXERTIONAL [None]
  - INFLAMMATION [None]
  - PERICARDITIS CONSTRICTIVE [None]
  - PLEURAL EFFUSION [None]
  - RIGHT VENTRICULAR FAILURE [None]
  - TRICUSPID VALVE INCOMPETENCE [None]
